FAERS Safety Report 9137799 (Version 1)
Quarter: 2013Q1

REPORT INFORMATION
  Report Type: Spontaneous
  Country: IE (occurrence: IE)
  Receive Date: 20130304
  Receipt Date: 20130304
  Transmission Date: 20140127
  Serious: Yes (Other)
  Sender: FDA-Public Use
  Company Number: IE-AMGEN-IRLSP2013012361

PATIENT
  Age: 69 Year
  Sex: Female

DRUGS (5)
  1. PROLIA [Suspect]
     Indication: OSTEOPOROSIS
     Dosage: 60 MG, Q6MO
     Route: 058
     Dates: start: 20120607
  2. FOLIC ACID [Concomitant]
     Dosage: UNK
  3. TEGRETOL [Concomitant]
  4. LAMICTAL [Concomitant]
     Dosage: 175 MG, BID
  5. CALCICHEW [Concomitant]

REACTIONS (2)
  - Convulsion [Recovered/Resolved]
  - Arthralgia [Recovered/Resolved]
